FAERS Safety Report 6974183-3 (Version None)
Quarter: 2010Q3

REPORT INFORMATION
  Report Type: 
  Country: None (occurrence: None)
  Receive Date: 20100909
  Receipt Date: 20100908
  Transmission Date: 20110219
  Serious: Yes (Hospitalization)
  Sender: FDA-Public Use
  Company Number: US-ABBOTT-10P-163-0667979-00

PATIENT
  Sex: Female
  Weight: 79.45 kg

DRUGS (9)
  1. HUMIRA [Suspect]
     Indication: CROHN'S DISEASE
     Dosage: SEVERAL INTERRUPTIONS OF THERAPY OFF AND ON, UNKNOWN DATES.
     Dates: start: 20071201, end: 20100817
  2. HUMIRA [Suspect]
     Indication: ARTHRITIS
  3. PREDNISONE [Suspect]
     Indication: CROHN'S DISEASE
     Dosage: WEANING OFF MEDICATION
  4. DULCOLAX [Concomitant]
     Indication: CONSTIPATION
  5. THYROXIN [Concomitant]
     Indication: HYPOTHYROIDISM
  6. ATENOLOL [Concomitant]
     Indication: HYPERTENSION
  7. CALCIUM [Concomitant]
     Indication: PRODUCT USED FOR UNKNOWN INDICATION
  8. VITAMIN D [Concomitant]
     Indication: PRODUCT USED FOR UNKNOWN INDICATION
  9. OXYCONTIN [Concomitant]
     Indication: PAIN

REACTIONS (9)
  - ASTHENIA [None]
  - CHEILITIS [None]
  - FATIGUE [None]
  - FUNGAL OESOPHAGITIS [None]
  - MALAISE [None]
  - OESOPHAGEAL ULCER [None]
  - PYREXIA [None]
  - SKIN ULCER [None]
  - STOMATITIS [None]
